FAERS Safety Report 4714269-7 (Version None)
Quarter: 2005Q3

REPORT INFORMATION
  Report Type: 
  Country: None (occurrence: None)
  Receive Date: 20050712
  Receipt Date: 20050613
  Transmission Date: 20060218
  Serious: Yes (Other)
  Sender: FDA-Public Use
  Company Number: GBWYE936829JUL04

PATIENT
  Age: 33 Year
  Sex: Female

DRUGS (5)
  1. EFFEXOR XR [Suspect]
     Indication: DEPRESSION
     Dosage: 225MG ORAL
     Route: 048
     Dates: start: 20040323
  2. EFFEXOR XR [Suspect]
     Indication: SCHIZOAFFECTIVE DISORDER
     Dosage: 225MG ORAL
     Route: 048
     Dates: start: 20040323
  3. AMITRIPTYLINE HCL [Suspect]
     Dosage: AT TIME OF GIVING BIRTH
  4. OLANZAPINE [Suspect]
     Dosage: AT TIME OF GIVING BIRTH
  5. QUETIAPINE (QUETIAPINE, , 0) [Suspect]
     Indication: SCHIZOAFFECTIVE DISORDER
     Dosage: 600MG ORAL
     Route: 048
     Dates: start: 20040507

REACTIONS (5)
  - BLOOD PRESSURE INCREASED [None]
  - CAESAREAN SECTION [None]
  - DRUG EXPOSURE DURING PREGNANCY [None]
  - GESTATIONAL DIABETES [None]
  - PREGNANCY [None]
